FAERS Safety Report 16421700 (Version 1)
Quarter: 2019Q2

REPORT INFORMATION
  Report Type: Spontaneous
  Country: US (occurrence: US)
  Receive Date: 20190612
  Receipt Date: 20190612
  Transmission Date: 20190711
  Serious: No
  Sender: FDA-Public Use
  Company Number: US-DSJP-DSU-2019-121532

PATIENT

DRUGS (2)
  1. BENICAR [Suspect]
     Active Substance: OLMESARTAN MEDOXOMIL
     Indication: ATRIAL FIBRILLATION
     Dosage: 20 MG
     Route: 065
  2. BENICAR [Suspect]
     Active Substance: OLMESARTAN MEDOXOMIL
     Dosage: 5 MG, BID
     Route: 065

REACTIONS (2)
  - Product dose omission [Unknown]
  - No adverse event [Unknown]
